FAERS Safety Report 7557321-3 (Version None)
Quarter: 2011Q2

REPORT INFORMATION
  Report Type: 
  Country: None (occurrence: None)
  Receive Date: 20110620
  Receipt Date: 20110616
  Transmission Date: 20111010
  Serious: Yes (Hospitalization)
  Sender: FDA-Public Use
  Company Number: SE-ROCHE-781519

PATIENT
  Age: 40 Year
  Sex: Female

DRUGS (4)
  1. OMEPRAZOLE [Concomitant]
  2. PREDNISOLONE [Concomitant]
  3. ACTEMRA [Suspect]
     Dosage: DOSE: 550MG2, DRUG: ROACTEMRA COND FOR SOL FOR INF 20MG/ML
     Route: 042
     Dates: start: 20090209, end: 20090306
  4. ACTEMRA [Suspect]
     Dosage: RECEIVE HER SECOND ROACTEMRA INFUSION, ONE MONTH AFTER THE FIRST.
     Route: 042

REACTIONS (3)
  - PYREXIA [None]
  - CHILLS [None]
  - BACK PAIN [None]
